FAERS Safety Report 8617422-5 (Version None)
Quarter: 2012Q3

REPORT INFORMATION
  Report Type: 
  Country: None (occurrence: None)
  Receive Date: 20120823
  Receipt Date: 20120823
  Transmission Date: 20120928
  Serious: Yes (Hospitalization)
  Sender: FDA-Public Use
  Company Number: ES-009507513-1208ESP009303

PATIENT

DRUGS (2)
  1. OLMESARTAN MEDOXOMIL [Interacting]
     Indication: HYPERTENSION
     Route: 048
     Dates: start: 20100921, end: 20101007
  2. JANUMET [Suspect]
     Route: 048
     Dates: start: 20100921, end: 20101007

REACTIONS (2)
  - VOMITING [None]
  - RENAL FAILURE ACUTE [None]
